FAERS Safety Report 6812061-0 (Version None)
Quarter: 2010Q2

REPORT INFORMATION
  Report Type: 
  Country: None (occurrence: None)
  Receive Date: 20100628
  Receipt Date: 20100609
  Transmission Date: 20101027
  Serious: Yes (Hospitalization)
  Sender: FDA-Public Use
  Company Number: CV20100299

PATIENT
  Age: 34 Year
  Sex: Female

DRUGS (14)
  1. PROPOFOL [Suspect]
     Indication: INDUCTION OF ANAESTHESIA
     Route: 042
  2. SUFENTA (SUFENTANIL CITRATE) (SUFENTANIL CITRATE) [Concomitant]
  3. NEURONTIN [Concomitant]
  4. NORMACOL LAVEMENT (BACTRIM) (BACTRIM) [Concomitant]
  5. DEXAMETHASONE [Concomitant]
  6. EPHEDRINE (EPHEDRINE) (EPHEDRINE) [Concomitant]
  7. BETADINE DERMIQUE (POVIDONE-IODINE) (POVIDONE-IODINE) [Concomitant]
  8. NAROPEINE (ROPIVACAINE HYDROCHLORIDE) (ROPIVACAINE HYDROCHLORIDE) [Concomitant]
  9. DROLEPTAN (DROPERIDOL) (DROPERIDOL) [Concomitant]
  10. LOVENOX (HEPARIN-FRACTION, SODIUM SALT) (HEPARIN-FRACTION, SODIUM SALT [Concomitant]
  11. KETAMINE (KETAMINE) (KETAMINE) [Concomitant]
  12. AUGMENTIN (AUGMENTIN) (AUGMENTIN) [Concomitant]
  13. SEVORANE (SEVOFLURANE) (SEVOFLURANE) [Concomitant]
  14. KALINOX (ENTONOX) (ENTONOX) [Concomitant]

REACTIONS (2)
  - LYMPHOPENIA [None]
  - RENAL FAILURE ACUTE [None]
